FAERS Safety Report 18501697 (Version 3)
Quarter: 2020Q4

REPORT INFORMATION
  Report Type: Report from Study
  Country: US (occurrence: US)
  Receive Date: 20201113
  Receipt Date: 20201210
  Transmission Date: 20210114
  Serious: Yes (Hospitalization, Other)
  Sender: FDA-Public Use
  Company Number: NVSC2020US299762

PATIENT
  Age: 54 Year
  Sex: Male

DRUGS (1)
  1. COSENTYX [Suspect]
     Active Substance: SECUKINUMAB
     Indication: PSORIASIS
     Dosage: UNK UNK, OTHER (ON HOLD HAS NOT RESUMED DRUG)
     Route: 065

REACTIONS (6)
  - Feeling of body temperature change [Unknown]
  - Cerebrovascular accident [Unknown]
  - Fall [Unknown]
  - Thrombosis [Unknown]
  - Atrial fibrillation [Unknown]
  - Hypertension [Unknown]

NARRATIVE: CASE EVENT DATE: 20200815
